FAERS Safety Report 23601678 (Version 1)
Quarter: 2024Q1

REPORT INFORMATION
  Report Type: Spontaneous
  Country: PT (occurrence: PT)
  Receive Date: 20240306
  Receipt Date: 20240306
  Transmission Date: 20240410
  Serious: Yes (Other)
  Sender: FDA-Public Use
  Company Number: PT-FreseniusKabi-FK202403737

PATIENT
  Age: 52 Year
  Sex: Male

DRUGS (6)
  1. GEMCITABINE [Suspect]
     Active Substance: GEMCITABINE
     Indication: Follicular thyroid cancer
     Dosage: (GEMOX), EVERY TWO WEEKS?NINE CYCLES
     Dates: start: 201607
  2. GEMCITABINE [Suspect]
     Active Substance: GEMCITABINE
     Dosage: COMPLETED THREE ADDITIONAL CYCLES (THE LAST IN JANUARY 2017)
  3. GEMCITABINE [Suspect]
     Active Substance: GEMCITABINE
     Dosage: SECOND PERIOD OF GEMOX TREATMENT (JUNE 2018 TO JUNE 2020)
  4. OXALIPLATIN [Suspect]
     Active Substance: OXALIPLATIN
     Indication: Follicular thyroid cancer
     Dosage: (GEMOX), EVERY TWO WEEKS NINE CYCLES?OXALIPLATIN DOSAGE WAS REDUCED BY 20 PERCENT
     Dates: start: 201607
  5. OXALIPLATIN [Suspect]
     Active Substance: OXALIPLATIN
     Dosage: COMPLETED THREE ADDITIONAL CYCLES (THE LAST IN JANUARY 2017)
  6. OXALIPLATIN [Suspect]
     Active Substance: OXALIPLATIN
     Dosage: SECOND PERIOD OF GEMOX TREATMENT (JUNE 2018 TO JUNE 2020)

REACTIONS (2)
  - Peripheral sensory neuropathy [Unknown]
  - Off label use [Unknown]
